FAERS Safety Report 14664587 (Version 2)
Quarter: 2018Q2

REPORT INFORMATION
  Report Type: Spontaneous
  Country: JP (occurrence: JP)
  Receive Date: 20180321
  Receipt Date: 20180619
  Transmission Date: 20180711
  Serious: Yes (Hospitalization)
  Sender: FDA-Public Use
  Company Number: JP-ASTRAZENECA-2018SE23261

PATIENT
  Age: 62 Year
  Sex: Male
  Weight: 62 kg

DRUGS (10)
  1. DAIPHEN [Suspect]
     Active Substance: SULFAMETHOXAZOLE\TRIMETHOPRIM
     Indication: PNEUMONIA
     Route: 065
     Dates: start: 20180122, end: 20180309
  2. MS CONTIN [Concomitant]
     Active Substance: MORPHINE SULFATE
  3. OPSO [Concomitant]
     Active Substance: MORPHINE HYDROCHLORIDE
  4. CALONAL [Suspect]
     Active Substance: ACETAMINOPHEN
     Indication: BACK PAIN
     Route: 065
     Dates: start: 20180118, end: 20180309
  5. LANSOPRAZOLE. [Suspect]
     Active Substance: LANSOPRAZOLE
     Indication: PROPHYLAXIS AGAINST GASTROINTESTINAL ULCER
     Route: 048
     Dates: start: 20180118
  6. MAGMITT [Concomitant]
     Active Substance: MAGNESIUM OXIDE
  7. DENOTAS [Concomitant]
     Active Substance: CALCIUM CARBONATE\CHOLECALCIFEROL\MAGNESIUM CARBONATE
  8. SYMPROIC [Concomitant]
     Active Substance: NALDEMEDINE
  9. IRESSA [Suspect]
     Active Substance: GEFITINIB
     Indication: LUNG ADENOCARCINOMA
     Route: 048
     Dates: start: 20180202, end: 20180222
  10. RINDERON V [Concomitant]
     Active Substance: BETAMETHASONE VALERATE
     Indication: SPINAL CORD COMPRESSION
     Dosage: DOSE UNKNOWN
     Route: 065
     Dates: start: 20180117

REACTIONS (4)
  - Computerised tomogram thorax abnormal [None]
  - Lung disorder [Recovering/Resolving]
  - Organising pneumonia [None]
  - Rash [Recovering/Resolving]

NARRATIVE: CASE EVENT DATE: 20180214
